FAERS Safety Report 4283442-7 (Version None)
Quarter: 2004Q1

REPORT INFORMATION
  Report Type: 
  Country: None (occurrence: None)
  Receive Date: 20040121
  Receipt Date: 20031014
  Transmission Date: 20041129
  Serious: Yes (Other)
  Sender: FDA-Public Use
  Company Number: A03200302417

PATIENT
  Age: 75 Year
  Sex: Male
  Weight: 88.4514 kg

DRUGS (7)
  1. PLAVIX [Suspect]
     Indication: TRANSIENT ISCHAEMIC ATTACK
     Dosage: 75 MG BID - ORAL
     Route: 048
     Dates: start: 20020114, end: 20030501
  2. PLAVIX [Suspect]
     Indication: TRANSIENT ISCHAEMIC ATTACK
     Dosage: 75 MG QD -ORAL
     Route: 048
     Dates: start: 20020501, end: 20030301
  3. METOPROLOL [Concomitant]
  4. ATORVASTATIN [Concomitant]
  5. LEVOTHYROXINE SODIUM [Concomitant]
  6. VITAMIN C [Concomitant]
  7. DOXEPIN HCL [Concomitant]

REACTIONS (2)
  - EYE HAEMORRHAGE [None]
  - OVERDOSE [None]
